FAERS Safety Report 6189709-X (Version None)
Quarter: 2009Q2

REPORT INFORMATION
  Report Type: 
  Country: None (occurrence: None)
  Receive Date: 20090514
  Receipt Date: 20090505
  Transmission Date: 20091009
  Serious: Yes (Other)
  Sender: FDA-Public Use
  Company Number: US-ROCHE-348216

PATIENT
  Age: 60 Year
  Sex: Male
  Weight: 99.8 kg

DRUGS (2)
  1. XENICAL [Suspect]
     Indication: CONSTIPATION
     Route: 048
     Dates: start: 20030201, end: 20030901
  2. XENICAL [Suspect]
     Route: 048
     Dates: start: 20080101

REACTIONS (6)
  - KNEE OPERATION [None]
  - MYALGIA [None]
  - PRURITUS [None]
  - TENDONITIS [None]
  - THROAT TIGHTNESS [None]
  - URTICARIA [None]
